FAERS Safety Report 6133552-4 (Version None)
Quarter: 2009Q1

REPORT INFORMATION
  Report Type: 
  Country: None (occurrence: None)
  Receive Date: 20090326
  Receipt Date: 20090324
  Transmission Date: 20090719
  Serious: Yes (Other)
  Sender: FDA-Public Use
  Company Number: US-BRISTOL-MYERS SQUIBB COMPANY-12894531

PATIENT
  Age: 65 Year
  Sex: Female

DRUGS (5)
  1. ESTRACE [Suspect]
     Indication: HORMONE THERAPY
  2. PREMARIN [Suspect]
     Indication: HORMONE THERAPY
  3. PROVERA [Suspect]
     Indication: HORMONE THERAPY
  4. PREMPRO [Suspect]
     Indication: HORMONE THERAPY
  5. OGEN [Suspect]
     Indication: HORMONE THERAPY

REACTIONS (1)
  - BREAST CANCER METASTATIC [None]
